FAERS Safety Report 18549286 (Version 1)
Quarter: 2020Q4

REPORT INFORMATION
  Report Type: Spontaneous
  Country: DE (occurrence: DE)
  Receive Date: 20201126
  Receipt Date: 20201126
  Transmission Date: 20210114
  Serious: Yes (Hospitalization)
  Sender: FDA-Public Use
  Company Number: DE-JNJFOC-20201117659

PATIENT
  Age: 89 Year
  Sex: Female

DRUGS (9)
  1. COLECALCIFEROL [Concomitant]
     Active Substance: CHOLECALCIFEROL
     Dosage: 20000 IU, OW
     Route: 048
  2. XARELTO [Suspect]
     Active Substance: RIVAROXABAN
     Indication: PRODUCT USED FOR UNKNOWN INDICATION
     Dosage: 20 MG, OM
     Route: 048
  3. AMLODIPINE [Concomitant]
     Active Substance: AMLODIPINE BESYLATE
     Dosage: 5 MG, OM
     Route: 048
  4. ASPIRIN                            /00002701/ [Suspect]
     Active Substance: ASPIRIN
     Indication: PRODUCT USED FOR UNKNOWN INDICATION
     Dosage: 100 MG
     Route: 048
     Dates: end: 20200826
  5. METOPROLOL. [Concomitant]
     Active Substance: METOPROLOL
     Dosage: 95 MG, BID
     Route: 048
  6. MOXONIDIN [Concomitant]
     Active Substance: MOXONIDINE
     Dosage: 0.2 MG, BID
     Route: 048
  7. RAMIPRIL. [Concomitant]
     Active Substance: RAMIPRIL
     Dosage: 5.0 MG, BID
     Route: 048
  8. CLOPIDOGREL [Suspect]
     Active Substance: CLOPIDOGREL BISULFATE
     Indication: PRODUCT USE IN UNAPPROVED INDICATION
     Dosage: 75 MG, OM
     Route: 048
  9. DEXAMETHASONE. [Concomitant]
     Active Substance: DEXAMETHASONE
     Dosage: 1 MG, OM
     Route: 048

REACTIONS (3)
  - Wound [Unknown]
  - Skin haemorrhage [Unknown]
  - Arterial haemorrhage [Unknown]

NARRATIVE: CASE EVENT DATE: 20200826
